FAERS Safety Report 17566014 (Version 2)
Quarter: 2020Q2

REPORT INFORMATION
  Report Type: Spontaneous
  Country: DE (occurrence: DE)
  Receive Date: 20200320
  Receipt Date: 20200529
  Transmission Date: 20200713
  Serious: Yes (Death, Hospitalization, Other)
  Sender: FDA-Public Use
  Company Number: DE-ASTELLAS-2020US010417

PATIENT
  Sex: Female

DRUGS (3)
  1. PIPERACILLIN. [Suspect]
     Active Substance: PIPERACILLIN SODIUM
     Indication: PRODUCT USED FOR UNKNOWN INDICATION
     Dosage: UNK UNK, UNKNOWN FREQ.
     Route: 065
  2. TAZOBACTAM [Suspect]
     Active Substance: TAZOBACTAM
     Indication: PRODUCT USED FOR UNKNOWN INDICATION
     Dosage: UNK UNK, UNKNOWN FREQ.
     Route: 065
  3. XOSPATA [Suspect]
     Active Substance: GILTERITINIB
     Indication: ACUTE MYELOID LEUKAEMIA
     Route: 065
     Dates: start: 20200113, end: 20200127

REACTIONS (18)
  - Renal failure [Unknown]
  - Oral candidiasis [Unknown]
  - Diarrhoea [Unknown]
  - Dyspnoea [Fatal]
  - White blood cell count increased [Fatal]
  - Hypertensive heart disease [Unknown]
  - Hypertensive nephropathy [Unknown]
  - Apathy [Unknown]
  - Inflammatory marker increased [Fatal]
  - General physical health deterioration [Fatal]
  - Pneumonia [Unknown]
  - Restlessness [Unknown]
  - Speech disorder [Unknown]
  - Vomiting [Unknown]
  - Fatigue [Unknown]
  - Left ventricular failure [Unknown]
  - Atrial fibrillation [Unknown]
  - Body temperature increased [Fatal]

NARRATIVE: CASE EVENT DATE: 202001
